FAERS Safety Report 7748519-X (Version None)
Quarter: 2011Q3

REPORT INFORMATION
  Report Type: 
  Country: None (occurrence: None)
  Receive Date: 20110914
  Receipt Date: 20110901
  Transmission Date: 20111222
  Serious: No
  Sender: FDA-Public Use
  Company Number: US-BIOGENIDEC-2011BI022494

PATIENT
  Age: 51 Year
  Sex: Male

DRUGS (3)
  1. IV STEROIDS [Concomitant]
     Indication: PREMEDICATION
  2. JANUVIA [Concomitant]
     Indication: DIABETES MELLITUS
  3. TYSABRI [Suspect]
     Indication: MULTIPLE SCLEROSIS
     Route: 042
     Dates: start: 20110610

REACTIONS (5)
  - MUSCLE SPASMS [None]
  - BLOOD GLUCOSE INCREASED [None]
  - DYSGEUSIA [None]
  - HYPERSOMNIA [None]
  - FATIGUE [None]
